FAERS Safety Report 16266549 (Version 3)
Quarter: 2019Q2

REPORT INFORMATION
  Report Type: Report from Study
  Country: CA (occurrence: CA)
  Receive Date: 20190502
  Receipt Date: 20190610
  Transmission Date: 20190711
  Serious: Yes (Other)
  Sender: FDA-Public Use
  Company Number: CA-JNJFOC-20190442009

PATIENT
  Age: 55 Year
  Sex: Female
  Weight: 82.55 kg

DRUGS (1)
  1. REMICADE [Suspect]
     Active Substance: INFLIXIMAB
     Indication: CROHN^S DISEASE
     Dosage: STRENGTH = 100 MG
     Route: 042
     Dates: start: 20090816

REACTIONS (6)
  - Crohn^s disease [Unknown]
  - Fall [Unknown]
  - Basal cell carcinoma [Recovering/Resolving]
  - Wrist fracture [Recovering/Resolving]
  - Arthralgia [Unknown]
  - Inflammation [Unknown]

NARRATIVE: CASE EVENT DATE: 201904
